FAERS Safety Report 7983689-X (Version None)
Quarter: 2011Q4

REPORT INFORMATION
  Report Type: 
  Country: None (occurrence: None)
  Receive Date: 20111215
  Receipt Date: 20111213
  Transmission Date: 20120403
  Serious: Yes (Other)
  Sender: FDA-Public Use
  Company Number: GB-MERCK-1112GBR00035

PATIENT
  Age: 67 Year
  Sex: Female
  Weight: 62 kg

DRUGS (4)
  1. ZOCOR [Suspect]
     Route: 048
     Dates: start: 20110712
  2. INFLUENZA VIRUS VACCINE (UNSPECIFIED) [Concomitant]
     Route: 065
     Dates: start: 20111117, end: 20111117
  3. ZOPICLONE [Concomitant]
     Route: 065
     Dates: start: 20110926, end: 20110927
  4. BENDROFLUMETHIAZIDE [Concomitant]
     Route: 065
     Dates: start: 20111124

REACTIONS (2)
  - NIGHTMARE [None]
  - SLEEP DISORDER [None]
